FAERS Safety Report 5926371-2 (Version None)
Quarter: 2008Q4

REPORT INFORMATION
  Report Type: 
  Country: None (occurrence: None)
  Receive Date: 20081022
  Receipt Date: 20081013
  Transmission Date: 20090506
  Serious: Yes (Hospitalization, Other)
  Sender: FDA-Public Use
  Company Number: US-BAYER-200813499BCC

PATIENT
  Age: 59 Year
  Sex: Male

DRUGS (3)
  1. ASPIRIN [Suspect]
     Indication: PAIN
     Dosage: UNIT DOSE: 325 MG
     Route: 048
  2. CELEBREX [Suspect]
     Indication: ARTHRITIS
     Route: 048
  3. HYDROCODONE/ACETAMINOPHEN 7.5/500MG [Concomitant]

REACTIONS (4)
  - CHOLELITHIASIS [None]
  - PLATELET COUNT INCREASED [None]
  - VARICOSE ULCERATION [None]
  - WHITE BLOOD CELL COUNT INCREASED [None]
